FAERS Safety Report 8432995-3 (Version None)
Quarter: 2012Q2

REPORT INFORMATION
  Report Type: 
  Country: None (occurrence: None)
  Receive Date: 20120613
  Receipt Date: 20120531
  Transmission Date: 20120825
  Serious: Yes (Congenital Anomaly, Other)
  Sender: FDA-Public Use
  Company Number: BE-FRI-1000031220

PATIENT
  Sex: Male

DRUGS (1)
  1. ESCITALOPRAM [Suspect]
     Route: 064

REACTIONS (6)
  - CONVULSION NEONATAL [None]
  - NEONATAL DISORDER [None]
  - FOETAL EXPOSURE DURING PREGNANCY [None]
  - NEONATAL HYPOXIA [None]
  - DYSPNOEA [None]
  - DEVELOPMENTAL DELAY [None]
